FAERS Safety Report 7555773-6 (Version None)
Quarter: 2011Q2

REPORT INFORMATION
  Report Type: 
  Country: None (occurrence: None)
  Receive Date: 20110618
  Receipt Date: 20110127
  Transmission Date: 20111010
  Serious: Yes (Life-Threatening, Hospitalization, Other)
  Sender: FDA-Public Use
  Company Number: US-BAYER-201032378NA

PATIENT
  Age: 48 Year
  Sex: Female
  Weight: 125.62 kg

DRUGS (9)
  1. YASMIN [Suspect]
     Dates: start: 20070301
  2. SYNTHROID [Concomitant]
     Indication: HYPOTHYROIDISM
     Dosage: 175 MCG/24HR, UNK
  3. ONGLYZA [Concomitant]
     Indication: DIABETES MELLITUS
     Dosage: 5 MG, UNK
  4. COUMADIN [Concomitant]
     Indication: PULMONARY EMBOLISM
     Dosage: 5 MG, UNK
  5. YASMIN [Suspect]
     Indication: CONTRACEPTION
     Dates: start: 20020201, end: 20050101
  6. AMARYL [Concomitant]
     Indication: DIABETES MELLITUS
     Dosage: 4 MG, UNK
  7. METFORMIN HCL [Concomitant]
     Indication: DIABETES MELLITUS
     Dosage: 500 MG, UNK
  8. YASMIN [Suspect]
     Dosage: UNK
     Dates: start: 20060101
  9. DIOVAN HCT [Concomitant]
     Indication: HYPERTENSION

REACTIONS (8)
  - OEDEMA PERIPHERAL [None]
  - PAIN IN EXTREMITY [None]
  - FATIGUE [None]
  - THROMBOSIS [None]
  - ABDOMINAL PAIN [None]
  - ASTHENIA [None]
  - DEEP VEIN THROMBOSIS [None]
  - PULMONARY EMBOLISM [None]
